FAERS Safety Report 21937763 (Version 3)
Quarter: 2023Q4

REPORT INFORMATION
  Report Type: Spontaneous
  Country: US (occurrence: US)
  Receive Date: 20230201
  Receipt Date: 20231019
  Transmission Date: 20240110
  Serious: Yes (Other)
  Sender: FDA-Public Use
  Company Number: US-BRISTOL-MYERS SQUIBB COMPANY-2023-015085

PATIENT
  Age: 72 Year
  Sex: Female

DRUGS (1)
  1. LENALIDOMIDE [Suspect]
     Active Substance: LENALIDOMIDE
     Indication: Vomiting
     Dosage: FREQUENCY: TAKE 1 CAPSULE BY MOUTH DAILY FOR 21 DAYS, STOP FOR 1 WEEK THEN RESTART.
     Route: 048
     Dates: start: 20221018

REACTIONS (6)
  - Product dose omission issue [Recovered/Resolved]
  - Off label use [Unknown]
  - COVID-19 [Recovered/Resolved]
  - Nasopharyngitis [Recovered/Resolved]
  - Pyrexia [Recovered/Resolved]
  - Memory impairment [Unknown]
